FAERS Safety Report 7708352-1 (Version None)
Quarter: 2011Q3

REPORT INFORMATION
  Report Type: 
  Country: None (occurrence: None)
  Receive Date: 20110822
  Receipt Date: 20110810
  Transmission Date: 20111222
  Serious: Yes (Hospitalization, Other)
  Sender: FDA-Public Use
  Company Number: USA/USA/11/0020700

PATIENT
  Age: 67 Year
  Sex: Female

DRUGS (1)
  1. GLIMEPIRIDE [Suspect]
     Indication: TYPE 2 DIABETES MELLITUS
     Dosage: 1 MG, 1 IN 1 D, ORAL
     Route: 048

REACTIONS (7)
  - HYPOGLYCAEMIA [None]
  - CONFUSIONAL STATE [None]
  - HYPOAESTHESIA ORAL [None]
  - UNRESPONSIVE TO STIMULI [None]
  - LOBAR PNEUMONIA [None]
  - DRUG INTERACTION [None]
  - CHEST PAIN [None]
